FAERS Safety Report 25061065 (Version 1)
Quarter: 2025Q1

REPORT INFORMATION
  Report Type: Report from Study
  Country: EG (occurrence: EG)
  Receive Date: 20250310
  Receipt Date: 20250310
  Transmission Date: 20250408
  Serious: No
  Sender: SANDOZ
  Company Number: EG-002147023-NVSC2023EG139110

PATIENT
  Age: 10 Year
  Sex: Male

DRUGS (3)
  1. OMNITROPE [Suspect]
     Active Substance: SOMATROPIN
     Indication: Growth hormone deficiency
     Dosage: 1.7 MG, QD (10MG / 1.5ML)
     Route: 058
     Dates: start: 20210730, end: 20211030
  2. OMNITROPE [Suspect]
     Active Substance: SOMATROPIN
     Dosage: 1.7 MG, QD, (5MG / 1.5ML)
     Route: 065
     Dates: start: 20211031
  3. OMNITROPE [Suspect]
     Active Substance: SOMATROPIN
     Route: 058
     Dates: start: 2023

REACTIONS (9)
  - Therapy cessation [Unknown]
  - Incorrect dose administered by device [Recovered/Resolved]
  - Drug dose omission by device [Recovered/Resolved]
  - Wrong technique in product usage process [Not Recovered/Not Resolved]
  - Product odour abnormal [Unknown]
  - Poor quality device used [Not Recovered/Not Resolved]
  - Product availability issue [Unknown]
  - Device issue [Not Recovered/Not Resolved]
  - Product substitution [Unknown]

NARRATIVE: CASE EVENT DATE: 20210701
